FAERS Safety Report 9148602 (Version 2)
Quarter: 2013Q3

REPORT INFORMATION
  Report Type: Other
  Country: GB (occurrence: GB)
  Receive Date: 20130308
  Receipt Date: 20130930
  Transmission Date: 20140515
  Serious: Yes (Disabling)
  Sender: FDA-Public Use
  Company Number: GB-PERRIGO-13GB002152

PATIENT
  Age: 39 Year
  Sex: Female
  Weight: 69.85 kg

DRUGS (3)
  1. IBUPROFEN 16028/0013 200 MG [Suspect]
     Indication: OROPHARYNGEAL PAIN
     Dosage: UNK, UNK
     Route: 065
  2. CITALOPRAM [Suspect]
     Indication: ANXIETY
     Dosage: 20 MG, QD
     Route: 048
     Dates: start: 20130131
  3. CITALOPRAM [Suspect]
     Indication: DEPRESSION
     Dosage: 10 MG, QD
     Route: 048
     Dates: end: 20130210

REACTIONS (3)
  - Vaginal haemorrhage [Recovered/Resolved with Sequelae]
  - Anaemia [Unknown]
  - Drug interaction [Unknown]
